FAERS Safety Report 7141723-3 (Version None)
Quarter: 2010Q4

REPORT INFORMATION
  Report Type: 
  Country: None (occurrence: None)
  Receive Date: 20101207
  Receipt Date: 20101123
  Transmission Date: 20110411
  Serious: Yes (Hospitalization)
  Sender: FDA-Public Use
  Company Number: PHHY2010AU80248

PATIENT
  Sex: Male

DRUGS (2)
  1. CLOZARIL [Suspect]
     Dosage: 650 MG
     Dates: start: 20070507
  2. CLOZARIL [Suspect]
     Dosage: UNK
     Dates: start: 20101122

REACTIONS (1)
  - CEREBROVASCULAR ACCIDENT [None]
